FAERS Safety Report 9069106 (Version 1)
Quarter: 2013Q1

REPORT INFORMATION
  Report Type: Spontaneous
  Country: CA (occurrence: CA)
  Receive Date: 20130128
  Receipt Date: 20130128
  Transmission Date: 20140127
  Serious: Yes (Hospitalization)
  Sender: FDA-Public Use
  Company Number: CA-ACCORD-016103

PATIENT
  Age: 36 Year
  Sex: Female

DRUGS (6)
  1. TACROLIMUS [Suspect]
     Indication: IMMUNOSUPPRESSION
     Dosage: DOSE REDUCED TO 0.5 MG TWICE A DAY.
  2. RIBAVIRIN [Suspect]
     Indication: HEPATITIS C
     Dosage: 400 MG BID, DOSE REDUCED TO 200 MG BID
  3. BOCEPREVIR [Interacting]
     Indication: HEPATITIS C
  4. MYCOPHENOLATE MOFETIL [Suspect]
     Indication: IMMUNOSUPPRESSION
  5. WARFARIN [Concomitant]
     Indication: SHUNT THROMBOSIS
  6. PEGINTERFERON ALFA-2A [Suspect]
     Indication: HEPATITIS C
     Dosage: DOSE REDUCED TO 48 MICROGRAM. AFTER THAT 48 MICROGRAM ONCE A WEEK.

REACTIONS (7)
  - Hepatitis C [Recovered/Resolved]
  - Anaemia [Recovering/Resolving]
  - Drug interaction [Unknown]
  - Ascites [Recovered/Resolved]
  - Hepatitis cholestatic [Recovered/Resolved]
  - Drug level increased [Unknown]
  - Neutropenia [Recovered/Resolved]
